FAERS Safety Report 17875087 (Version 1)
Quarter: 2020Q2

REPORT INFORMATION
  Report Type: Spontaneous
  Country: US (occurrence: US)
  Receive Date: 20200609
  Receipt Date: 20200609
  Transmission Date: 20200714
  Serious: No
  Sender: FDA-Public Use
  Company Number: US-TEVA-2020-US-1245074

PATIENT
  Sex: Female
  Weight: 74.84 kg

DRUGS (1)
  1. AUSTEDO [Suspect]
     Active Substance: DEUTETRABENAZINE
     Indication: TARDIVE DYSKINESIA
     Dosage: 36 MILLIGRAM DAILY;
     Route: 048
     Dates: start: 201901

REACTIONS (9)
  - Pruritus [Unknown]
  - Epistaxis [Unknown]
  - Discomfort [Unknown]
  - Pyrexia [Unknown]
  - Product dose omission [Unknown]
  - Swelling face [Unknown]
  - Lip swelling [Unknown]
  - Ear pruritus [Unknown]
  - Glossodynia [Unknown]
